FAERS Safety Report 9978836 (Version 1)
Quarter: 2014Q1

REPORT INFORMATION
  Report Type: Report from Study
  Country: US (occurrence: US)
  Receive Date: 20140306
  Receipt Date: 20140306
  Transmission Date: 20141002
  Serious: No
  Sender: FDA-Public Use
  Company Number: US-ABBVIE-13P-163-1168612-00

PATIENT
  Sex: Male
  Weight: 108.96 kg

DRUGS (3)
  1. HUMIRA [Suspect]
     Indication: RHEUMATOID ARTHRITIS
     Route: 058
     Dates: start: 2008
  2. HUMIRA [Suspect]
     Route: 058
     Dates: start: 2000, end: 2008
  3. METOPROLOL [Concomitant]
     Indication: HYPERTENSION

REACTIONS (1)
  - Rash pruritic [Not Recovered/Not Resolved]
